FAERS Safety Report 8629707 (Version 3)
Quarter: 2014Q1

REPORT INFORMATION
  Report Type: Spontaneous
  Country: US (occurrence: US)
  Receive Date: 20120622
  Receipt Date: 20140107
  Transmission Date: 20141002
  Serious: Yes (Hospitalization, Other)
  Sender: FDA-Public Use
  Company Number: US-ASTRAZENECA-2012SE36461

PATIENT
  Age: 50 Year
  Sex: Female

DRUGS (12)
  1. NEXIUM [Suspect]
     Indication: GASTROOESOPHAGEAL REFLUX DISEASE
     Route: 048
  2. NEXIUM [Suspect]
     Indication: GASTROOESOPHAGEAL REFLUX DISEASE
     Route: 048
     Dates: start: 1996, end: 2012
  3. NEXIUM [Suspect]
     Indication: GASTROOESOPHAGEAL REFLUX DISEASE
     Route: 048
     Dates: start: 20071206
  4. TUMS [Concomitant]
  5. ROPINIROLE [Concomitant]
     Indication: DYSKINESIA
  6. ROPINIROLE [Concomitant]
     Indication: CONVULSION
  7. NEUPRO [Concomitant]
     Indication: DYSKINESIA
  8. ADVAIR [Concomitant]
     Indication: ASTHMA
  9. COMBIVENT [Concomitant]
     Indication: ASTHMA
  10. PRILOSEC OTC [Concomitant]
  11. LISINOPRIL [Concomitant]
     Indication: HYPERTENSION
  12. HYROXYCHLOROQUINE [Concomitant]
     Indication: SYSTEMIC LUPUS ERYTHEMATOSUS

REACTIONS (13)
  - Convulsion [Unknown]
  - Cough [Unknown]
  - Back pain [Unknown]
  - Asthma [Unknown]
  - Chest pain [Unknown]
  - Osteoporosis [Unknown]
  - Bone density decreased [Unknown]
  - Systemic lupus erythematosus [Unknown]
  - Multiple fractures [Unknown]
  - Bone pain [Unknown]
  - Arthritis [Unknown]
  - Osteogenesis imperfecta [Unknown]
  - Osteopenia [Unknown]
